FAERS Safety Report 15797743 (Version 1)
Quarter: 2019Q1

REPORT INFORMATION
  Report Type: Report from Study
  Country: US (occurrence: US)
  Receive Date: 20190108
  Receipt Date: 20190108
  Transmission Date: 20190417
  Serious: Yes (Other)
  Sender: FDA-Public Use
  Company Number: US-MYLANLABS-2018M1094390

PATIENT

DRUGS (3)
  1. LABETALOL [Concomitant]
     Active Substance: LABETALOL\LABETALOL HYDROCHLORIDE
     Indication: PRODUCT USED FOR UNKNOWN INDICATION
     Dosage: 100 MILLIGRAM, QD
  2. GLATIRAMER ACETATE INJECTION [Suspect]
     Active Substance: GLATIRAMER ACETATE
     Indication: RELAPSING-REMITTING MULTIPLE SCLEROSIS
     Dosage: 40 MILLIGRAM, 3XW
     Route: 058
  3. VITAMIN D [Concomitant]
     Active Substance: CHOLECALCIFEROL
     Indication: PRODUCT USED FOR UNKNOWN INDICATION
     Dosage: UNK

REACTIONS (12)
  - Injury associated with device [Not Recovered/Not Resolved]
  - Drug ineffective [Recovering/Resolving]
  - Pallor [Recovering/Resolving]
  - Feeling hot [Not Recovered/Not Resolved]
  - Medication error [Not Recovered/Not Resolved]
  - Skin discolouration [Recovering/Resolving]
  - Injection site bruising [Recovering/Resolving]
  - Burning sensation [Recovering/Resolving]
  - Rash macular [Recovering/Resolving]
  - Paraesthesia [Recovering/Resolving]
  - Urticaria [Recovering/Resolving]
  - Injection site pain [Recovering/Resolving]

NARRATIVE: CASE EVENT DATE: 20181214
